FAERS Safety Report 5239093-0 (Version None)
Quarter: 2007Q1

REPORT INFORMATION
  Report Type: 
  Country: None (occurrence: None)
  Receive Date: 20061208
  Receipt Date: 20050701
  Transmission Date: 20070707
  Serious: Yes (Other)
  Sender: FDA-Public Use
  Company Number: 2005UW09945

PATIENT
  Age: 76 Year
  Sex: Female
  Weight: 64.863 kg

DRUGS (3)
  1. CRESTOR [Suspect]
     Indication: BLOOD CHOLESTEROL INCREASED
     Dosage: 10 MG PO
     Route: 048
  2. ZOLOFT [Concomitant]
  3. PREMPRO [Concomitant]

REACTIONS (1)
  - INCREASED APPETITE [None]
